FAERS Safety Report 20025385 (Version 2)
Quarter: 2024Q4

REPORT INFORMATION
  Report Type: Spontaneous
  Country: US (occurrence: US)
  Receive Date: 20211102
  Receipt Date: 20241022
  Transmission Date: 20250115
  Serious: No
  Sender: JAZZ
  Company Number: US-JAZZ-2021-US-017426

PATIENT
  Age: 38 Year
  Sex: Female

DRUGS (2)
  1. XYREM [Suspect]
     Active Substance: SODIUM OXYBATE
     Indication: Spasmodic dysphonia
     Dosage: UNKNOWN DOSE AND FREQUENCY
  2. XYREM [Suspect]
     Active Substance: SODIUM OXYBATE
     Dosage: 1 GRAM
     Route: 048

REACTIONS (3)
  - Pre-existing condition improved [Unknown]
  - Therapeutic response unexpected [Unknown]
  - Off label use [Unknown]
